FAERS Safety Report 14524920 (Version 1)
Quarter: 2018Q1

REPORT INFORMATION
  Report Type: Spontaneous
  Country: US (occurrence: US)
  Receive Date: 20180213
  Receipt Date: 20180213
  Transmission Date: 20180509
  Serious: Yes (Hospitalization)
  Sender: FDA-Public Use
  Company Number: US-TARO PHARMACEUTICALS USA.,INC-2018SUN00065

PATIENT
  Age: 48 Year
  Sex: Male

DRUGS (3)
  1. ASA [Suspect]
     Active Substance: ASPIRIN
     Indication: ANTICOAGULANT THERAPY
     Dosage: UNK
     Route: 048
  2. WARFARIN [Suspect]
     Active Substance: WARFARIN
     Indication: ANTICOAGULANT THERAPY
     Dosage: UNK
     Route: 048
  3. HEPARIN [Suspect]
     Active Substance: HEPARIN SODIUM
     Indication: ANTICOAGULANT THERAPY
     Dosage: UNK
     Route: 048

REACTIONS (5)
  - Mental status changes [Recovered/Resolved]
  - Subarachnoid haemorrhage [Recovered/Resolved]
  - Hydrocephalus [Recovered/Resolved]
  - Intraventricular haemorrhage [Recovered/Resolved]
  - Subdural haematoma [Recovered/Resolved]
